FAERS Safety Report 4648975-X (Version None)
Quarter: 2005Q2

REPORT INFORMATION
  Report Type: 
  Country: None (occurrence: None)
  Receive Date: 20050429
  Receipt Date: 20040805
  Transmission Date: 20051028
  Serious: Yes (Other)
  Sender: FDA-Public Use
  Company Number: US-JNJFOC-20050406804

PATIENT
  Sex: Male

DRUGS (4)
  1. TRAMADOL HCL [Suspect]
     Indication: DRUG USE FOR UNKNOWN INDICATION
  2. TYLENOL [Suspect]
  3. TYLENOL [Suspect]
     Indication: DRUG USE FOR UNKNOWN INDICATION
  4. TYLENOL [Suspect]

REACTIONS (2)
  - LOSS OF CONSCIOUSNESS [None]
  - SUICIDE ATTEMPT [None]
